FAERS Safety Report 8624280-1 (Version None)
Quarter: 2012Q3

REPORT INFORMATION
  Report Type: 
  Country: None (occurrence: None)
  Receive Date: 20120827
  Receipt Date: 20120821
  Transmission Date: 20120928
  Serious: Yes (Other)
  Sender: FDA-Public Use
  Company Number: JP-JNJFOC-20120804015

PATIENT
  Age: 45 Year
  Sex: Female

DRUGS (2)
  1. METHOTREXATE [Suspect]
     Indication: RHEUMATOID ARTHRITIS
     Route: 065
  2. INFLIXIMAB, RECOMBINANT [Suspect]
     Indication: RHEUMATOID ARTHRITIS
     Dosage: 0 (INITIAL DOSE OF 3 MG/KG), 2, AND 6 WEEKS AND THEN EVERY 8 WEEKS
     Route: 042

REACTIONS (4)
  - SYSTEMIC LUPUS ERYTHEMATOSUS [None]
  - LEUKOPENIA [None]
  - ALOPECIA [None]
  - DRUG INEFFECTIVE [None]
